FAERS Safety Report 7083738-X (Version None)
Quarter: 2010Q4

REPORT INFORMATION
  Report Type: 
  Country: None (occurrence: None)
  Receive Date: 20101025
  Receipt Date: 20101010
  Transmission Date: 20110411
  Serious: Yes (Other)
  Sender: FDA-Public Use
  Company Number: GB-DEXPHARM-20101573

PATIENT
  Age: 70 Year

DRUGS (3)
  1. OMEPRAZOLE [Suspect]
     Dates: start: 20071201
  2. DOMPERIDONE [Concomitant]
  3. LISINOPRIL [Concomitant]

REACTIONS (5)
  - DRUG HYPERSENSITIVITY [None]
  - FATIGUE [None]
  - MALAISE [None]
  - RENAL INJURY [None]
  - TUBULOINTERSTITIAL NEPHRITIS [None]
